FAERS Safety Report 10955311 (Version 2)
Quarter: 2015Q2

REPORT INFORMATION
  Report Type: Spontaneous
  Country: US (occurrence: US)
  Receive Date: 20150326
  Receipt Date: 20150402
  Transmission Date: 20150821
  Serious: No
  Sender: FDA-Public Use
  Company Number: US-009507513-1503USA007398

PATIENT
  Age: 18 Year
  Sex: Female
  Weight: 51.25 kg

DRUGS (1)
  1. NEXPLANON [Suspect]
     Active Substance: ETONOGESTREL
     Indication: CONTRACEPTION
     Dosage: THERAPY ROUTE:RIGHT ARM, FREQUENCY:3 YEARS
     Route: 059
     Dates: start: 20140227

REACTIONS (1)
  - Implant site rash [Unknown]

NARRATIVE: CASE EVENT DATE: 201412
